FAERS Safety Report 9342511 (Version 2)
Quarter: 2013Q3

REPORT INFORMATION
  Report Type: Spontaneous
  Country: IT (occurrence: None)
  Receive Date: 20130607
  Receipt Date: 20130822
  Transmission Date: 20140515
  Serious: Yes (Other)
  Sender: FDA-Public Use
  Company Number: AUR-APL-2013-04721

PATIENT
  Age: 43 Year
  Sex: Male

DRUGS (1)
  1. RISPERIDONE (RISPERIDONE) [Suspect]
     Indication: MANIA
     Dosage: 3 MG, 1 D, ORAL
     Route: 048
     Dates: start: 20110318, end: 20120517

REACTIONS (2)
  - Psychotic behaviour [None]
  - Product substitution issue [None]
